FAERS Safety Report 8347713-7 (Version None)
Quarter: 2012Q2

REPORT INFORMATION
  Report Type: 
  Country: None (occurrence: None)
  Receive Date: 20120507
  Receipt Date: 20120426
  Transmission Date: 20120825
  Serious: Yes (Hospitalization)
  Sender: FDA-Public Use
  Company Number: IMP_05869_2012

PATIENT
  Age: 61 Year
  Sex: Male
  Weight: 84 kg

DRUGS (2)
  1. SIMVASTATIN [Concomitant]
  2. OXYBUTYNIN [Suspect]
     Indication: HYPERTONIC BLADDER
     Dosage: (DF)

REACTIONS (4)
  - HAEMATURIA [None]
  - URINARY RETENTION POSTOPERATIVE [None]
  - DYSURIA [None]
  - PROCEDURAL HYPOTENSION [None]
